FAERS Safety Report 12664194 (Version 1)
Quarter: 2016Q3

REPORT INFORMATION
  Report Type: Report from Study
  Country: US (occurrence: US)
  Receive Date: 20160818
  Receipt Date: 20160818
  Transmission Date: 20161109
  Serious: Yes (Hospitalization, Other)
  Sender: FDA-Public Use
  Company Number: US-ASTELLAS-2011001934

PATIENT
  Age: 76 Year
  Sex: Male

DRUGS (3)
  1. VISMODEGIB [Suspect]
     Active Substance: VISMODEGIB
     Indication: ADENOCARCINOMA PANCREAS
     Dosage: 150 MG, ONCE DAILY,CYCLE=28 DAYS
     Route: 048
     Dates: start: 20110207, end: 20110404
  2. ERLOTINIB [Suspect]
     Active Substance: ERLOTINIB
     Route: 048
  3. ERLOTINIB [Suspect]
     Active Substance: ERLOTINIB
     Indication: ADENOCARCINOMA PANCREAS
     Route: 048
     Dates: start: 20110207, end: 20110419

REACTIONS (12)
  - Lipase increased [Recovering/Resolving]
  - Embolism [Unknown]
  - Pancreatitis [Unknown]
  - Embolism [Recovered/Resolved]
  - Abdominal pain [Recovering/Resolving]
  - Blood bilirubin increased [Recovering/Resolving]
  - Lipase increased [Unknown]
  - Blood alkaline phosphatase increased [Recovering/Resolving]
  - Pain in extremity [Unknown]
  - Pancreatitis [Recovering/Resolving]
  - Abdominal pain [Unknown]
  - Ileus [Recovering/Resolving]

NARRATIVE: CASE EVENT DATE: 20110419
